FAERS Safety Report 5132043-7 (Version None)
Quarter: 2006Q4

REPORT INFORMATION
  Report Type: 
  Country: None (occurrence: None)
  Receive Date: 20061017
  Receipt Date: 20061006
  Transmission Date: 20070319
  Serious: Yes (Other)
  Sender: FDA-Public Use
  Company Number: 2006123273

PATIENT
  Sex: Female

DRUGS (4)
  1. DEPO-PROVERA [Suspect]
  2. KLONOPIN [Suspect]
  3. LAMICTAL [Suspect]
  4. SEROQUEL [Suspect]

REACTIONS (1)
  - AMNESIA [None]
